FAERS Safety Report 9644738 (Version 1)
Quarter: 2013Q4

REPORT INFORMATION
  Report Type: Spontaneous
  Country: US (occurrence: US)
  Receive Date: 20131025
  Receipt Date: 20131025
  Transmission Date: 20140711
  Serious: No
  Sender: FDA-Public Use
  Company Number: US-PFIZER INC-2013302160

PATIENT
  Age: 28 Year
  Sex: Female

DRUGS (3)
  1. NEURONTIN [Suspect]
     Indication: NEURALGIA
     Dosage: 300 MG, UNK
     Dates: start: 2006
  2. NEURONTIN [Suspect]
     Dosage: 200 MG, UNK
  3. NEURONTIN [Suspect]
     Dosage: 100 MG, UNK

REACTIONS (3)
  - Drug dose omission [Unknown]
  - Insomnia [Unknown]
  - Impaired work ability [Unknown]
